FAERS Safety Report 18039879 (Version 1)
Quarter: 2020Q3

REPORT INFORMATION
  Report Type: Spontaneous
  Country: US (occurrence: US)
  Receive Date: 20200717
  Receipt Date: 20200717
  Transmission Date: 20201103
  Serious: Yes (Hospitalization)
  Sender: FDA-Public Use
  Company Number: US-GLAXOSMITHKLINE-US2020131192

PATIENT
  Age: 70 Year
  Sex: Male

DRUGS (2)
  1. FLOVENT HFA [Suspect]
     Active Substance: FLUTICASONE PROPIONATE
     Indication: PRODUCT USED FOR UNKNOWN INDICATION
     Dosage: 1 PUFF(S), BID
     Route: 065
     Dates: start: 20200626
  2. VENTOLIN HFA [Suspect]
     Active Substance: ALBUTEROL SULFATE
     Indication: PRODUCT USED FOR UNKNOWN INDICATION
     Dosage: UNK
     Route: 065
     Dates: start: 20200626

REACTIONS (15)
  - Sinusitis [Unknown]
  - Headache [Unknown]
  - Extra dose administered [Unknown]
  - Off label use [Unknown]
  - Fall [Unknown]
  - Productive cough [Unknown]
  - Dyspnoea [Unknown]
  - Underdose [Unknown]
  - SARS-CoV-2 antibody test positive [Unknown]
  - Cough [Unknown]
  - Decreased appetite [Unknown]
  - Wrong technique in device usage process [Unknown]
  - Wrong technique in product usage process [Unknown]
  - Dysphonia [Unknown]
  - Taste disorder [Unknown]

NARRATIVE: CASE EVENT DATE: 202006
